FAERS Safety Report 5895000-9 (Version None)
Quarter: 2008Q3

REPORT INFORMATION
  Report Type: 
  Country: None (occurrence: None)
  Receive Date: 20080922
  Receipt Date: 20080911
  Transmission Date: 20090109
  Serious: Yes (Death)
  Sender: FDA-Public Use
  Company Number: 2008-00477

PATIENT
  Age: 65 Year
  Sex: Female
  Weight: 53 kg

DRUGS (5)
  1. VELCADE [Suspect]
     Indication: MULTIPLE MYELOMA
     Dosage: 1.94 MG, INTRAVENOUS
     Route: 042
     Dates: start: 20071026, end: 20071105
  2. PURSENNID (SENNA LEAF) [Concomitant]
  3. MUCOSTA (REBAMIPIDE) [Concomitant]
  4. FAMOTIDINE [Concomitant]
  5. RED BLOOD CELLS [Concomitant]

REACTIONS (6)
  - BLOOD URIC ACID INCREASED [None]
  - CONSTIPATION [None]
  - DISEASE PROGRESSION [None]
  - NEUTROPHIL COUNT DECREASED [None]
  - PLATELET COUNT DECREASED [None]
  - TOOTHACHE [None]
